FAERS Safety Report 14496662 (Version 1)
Quarter: 2018Q1

REPORT INFORMATION
  Report Type: Report from Study
  Country: BR (occurrence: BR)
  Receive Date: 20180207
  Receipt Date: 20180207
  Transmission Date: 20180509
  Serious: Yes (Life-Threatening, Other)
  Sender: FDA-Public Use
  Company Number: PHHY2018BR019578

PATIENT
  Age: 61 Year
  Sex: Female

DRUGS (1)
  1. EXJADE [Suspect]
     Active Substance: DEFERASIROX
     Indication: IRON OVERLOAD
     Dosage: UNK
     Route: 065
     Dates: start: 2007

REACTIONS (9)
  - Pyrexia [Unknown]
  - Vomiting [Unknown]
  - Hypotension [Unknown]
  - Intracranial aneurysm [Recovered/Resolved]
  - Coma [Recovered/Resolved]
  - Varicose vein [Unknown]
  - Erysipelas [Unknown]
  - Syncope [Recovered/Resolved]
  - Nervousness [Recovered/Resolved]

NARRATIVE: CASE EVENT DATE: 20070905
